FAERS Safety Report 6906787-8 (Version None)
Quarter: 2010Q3

REPORT INFORMATION
  Report Type: 
  Country: None (occurrence: None)
  Receive Date: 20100804
  Receipt Date: 20100201
  Transmission Date: 20110219
  Serious: Yes (Death, Life-Threatening, Other)
  Sender: FDA-Public Use
  Company Number: GB-ELI_LILLY_AND_COMPANY-GB201008000061

PATIENT
  Age: 84 Year
  Sex: Female

DRUGS (7)
  1. DROTRECOGIN ALFA (ACTIVATED) [Suspect]
     Indication: SEPTIC SHOCK
     Dosage: UNK, UNKNOWN
     Route: 042
     Dates: start: 20100117, end: 20100120
  2. AMIODARONE HCL [Concomitant]
     Dosage: UNK, UNKNOWN
     Route: 065
  3. DOBUTAMINE HCL [Concomitant]
     Dosage: UNK, UNKNOWN
     Route: 065
  4. ENOXAPARIN SODIUM [Concomitant]
     Dosage: UNK, UNKNOWN
     Route: 065
  5. ESOMEPRAZOLE MAGNESIUM [Concomitant]
     Dosage: UNK, UNKNOWN
     Route: 065
  6. NORADRENALINE [Concomitant]
     Dosage: UNK, UNKNOWN
     Route: 065
  7. TAZOCIN [Concomitant]
     Dosage: UNK, UNKNOWN
     Route: 065

REACTIONS (2)
  - COAGULOPATHY [None]
  - DEATH [None]
